FAERS Safety Report 12474316 (Version 1)
Quarter: 2016Q2

REPORT INFORMATION
  Report Type: Spontaneous
  Country: US (occurrence: None)
  Receive Date: 20160616
  Receipt Date: 20160616
  Transmission Date: 20160815
  Serious: Yes (Death)
  Sender: FDA-Public Use
  Company Number: None

PATIENT
  Age: 33 Year
  Sex: Male
  Weight: 88 kg

DRUGS (3)
  1. TESTOSTERONE GEL [Concomitant]
     Active Substance: TESTOSTERONE
  2. METFORMIN [Concomitant]
     Active Substance: METFORMIN HYDROCHLORIDE
  3. TRULICITY [Suspect]
     Active Substance: DULAGLUTIDE
     Indication: TYPE 2 DIABETES MELLITUS
     Route: 058
     Dates: start: 201604, end: 20160513

REACTIONS (4)
  - Nausea [None]
  - Myocardial infarction [None]
  - Dyspnoea [None]
  - Dyspepsia [None]

NARRATIVE: CASE EVENT DATE: 20160513
